FAERS Safety Report 22099143 (Version 1)
Quarter: 2023Q1

REPORT INFORMATION
  Report Type: Spontaneous
  Country: US (occurrence: None)
  Receive Date: 20230314
  Receipt Date: 20230314
  Transmission Date: 20230417
  Serious: No
  Sender: FDA-Public Use
  Company Number: None

PATIENT
  Sex: Male

DRUGS (1)
  1. REBIF [Suspect]
     Active Substance: INTERFERON BETA-1A
     Dosage: OTHER STRENGTH : 44/0.5 UG/ML;?
     Route: 058

REACTIONS (2)
  - Therapy cessation [None]
  - General physical health deterioration [None]
